FAERS Safety Report 4792660-0 (Version None)
Quarter: 2005Q4

REPORT INFORMATION
  Report Type: 
  Country: None (occurrence: None)
  Receive Date: 20051010
  Receipt Date: 20050928
  Transmission Date: 20060501
  Serious: Yes (Other)
  Sender: FDA-Public Use
  Company Number: PT-SANOFI-SYNTHELABO-A01200506607

PATIENT
  Age: 60 Year
  Sex: Male

DRUGS (2)
  1. BENESTAN OD [Suspect]
     Indication: PROSTATIC ADENOMA
     Route: 048
     Dates: start: 20050101, end: 20050901
  2. FINASTERIDE [Suspect]
     Indication: DRUG USE FOR UNKNOWN INDICATION
     Dosage: 5 MG
     Route: 048
     Dates: start: 20050101, end: 20050901

REACTIONS (1)
  - PHIMOSIS [None]
